FAERS Safety Report 7597987-5 (Version None)
Quarter: 2011Q3

REPORT INFORMATION
  Report Type: 
  Country: None (occurrence: None)
  Receive Date: 20110708
  Receipt Date: 20110630
  Transmission Date: 20111222
  Serious: Yes (Other)
  Sender: FDA-Public Use
  Company Number: PHHY2011RU57922

PATIENT
  Age: 44 Year
  Sex: Male

DRUGS (3)
  1. TRIMEPERIDINE [Concomitant]
  2. KETOPROFEN [Suspect]
  3. CEFAZOLIN [Concomitant]

REACTIONS (1)
  - ANGIOEDEMA [None]
